FAERS Safety Report 9312238 (Version 1)
Quarter: 2013Q2

REPORT INFORMATION
  Report Type: Spontaneous
  Country: US (occurrence: US)
  Receive Date: 20130528
  Receipt Date: 20130528
  Transmission Date: 20140414
  Serious: No
  Sender: FDA-Public Use
  Company Number: US-BAYER-2013-065798

PATIENT
  Age: 27 Year
  Sex: Female

DRUGS (5)
  1. BETASERON [Suspect]
     Dosage: 0.25 MG, QOD
     Route: 058
  2. CYMBALTA [Concomitant]
     Dosage: 20 MG, UNK
  3. TOPAMAX [Concomitant]
     Dosage: 200 MG, UNK
  4. NEURONTIN [Concomitant]
     Dosage: 400 MG, UNK
  5. WELLBUTRIN [Concomitant]
     Dosage: 75 MG, UNK

REACTIONS (1)
  - Pain in extremity [Unknown]
